FAERS Safety Report 12485077 (Version 10)
Quarter: 2019Q2

REPORT INFORMATION
  Report Type: Report from Study
  Country: US (occurrence: US)
  Receive Date: 20160621
  Receipt Date: 20190611
  Transmission Date: 20190711
  Serious: Yes (Other)
  Sender: FDA-Public Use
  Company Number: PHHY2016US032116

PATIENT
  Age: 52 Year
  Sex: Female

DRUGS (7)
  1. GILENYA [Suspect]
     Active Substance: FINGOLIMOD HYDROCHLORIDE
     Indication: MULTIPLE SCLEROSIS
     Dosage: 0.5 MG, QD
     Route: 048
  2. DIMETHYL FUMARATE [Concomitant]
     Active Substance: DIMETHYL FUMARATE
     Dosage: 240 MG, TID
     Route: 065
     Dates: start: 20101210, end: 20150713
  3. VITAMIN B COMPLEX [Concomitant]
     Active Substance: CYANOCOBALAMIN\DEXPANTHENOL\NIACINAMIDE\PYRIDOXINE HYDROCHLORIDE\RIBOFLAVIN 5^-PHOSPHATE SODIUM\THIAMINE HYDROCHLORIDE\VITAMIN B COMPLEX
     Indication: GENERAL PHYSICAL HEALTH DETERIORATION
     Dosage: UNK
     Route: 065
     Dates: start: 20150730
  4. TECFIDERA [Concomitant]
     Active Substance: DIMETHYL FUMARATE
     Indication: PRODUCT USED FOR UNKNOWN INDICATION
     Dosage: 240 MG, BID
     Route: 065
     Dates: start: 2013
  5. DIMETHYL FUMARATE [Concomitant]
     Active Substance: DIMETHYL FUMARATE
     Indication: MULTIPLE SCLEROSIS
     Dosage: UNK
     Route: 065
     Dates: start: 20101010
  6. GILENYA [Suspect]
     Active Substance: FINGOLIMOD HYDROCHLORIDE
     Dosage: UNK
     Route: 065
     Dates: start: 20160223
  7. DIMETHYL FUMARATE [Concomitant]
     Active Substance: DIMETHYL FUMARATE
     Dosage: 240 MG, BID
     Route: 065
     Dates: start: 20150714

REACTIONS (25)
  - Anal incontinence [Recovered/Resolved]
  - Asthenia [Unknown]
  - Basal cell carcinoma [Not Recovered/Not Resolved]
  - Urinary retention [Not Recovered/Not Resolved]
  - Fatigue [Unknown]
  - Seasonal allergy [Unknown]
  - Weight decreased [Recovered/Resolved]
  - Lymphocyte count decreased [Recovering/Resolving]
  - Narcolepsy [Unknown]
  - Alanine aminotransferase increased [Unknown]
  - Retinal tear [Recovered/Resolved]
  - Upper respiratory tract infection [Unknown]
  - Liver function test increased [Unknown]
  - Spinal pain [Recovered/Resolved]
  - Angiokeratoma [Unknown]
  - Oral herpes [Unknown]
  - Actinic keratosis [Not Recovered/Not Resolved]
  - Retinal degeneration [Unknown]
  - Blood alkaline phosphatase increased [Unknown]
  - Aphasia [Unknown]
  - Seborrhoeic dermatitis [Unknown]
  - Melanocytic naevus [Not Recovered/Not Resolved]
  - Lymphocyte count decreased [Recovered/Resolved]
  - Cellulitis [Recovered/Resolved]
  - Dyspareunia [Unknown]

NARRATIVE: CASE EVENT DATE: 20130628
